FAERS Safety Report 4876065-X (Version None)
Quarter: 2005Q4

REPORT INFORMATION
  Report Type: 
  Country: None (occurrence: None)
  Receive Date: 20051206
  Receipt Date: 20051025
  Transmission Date: 20060501
  Serious: No
  Sender: FDA-Public Use
  Company Number: USA0510111794

PATIENT
  Age: 90 Year
  Sex: Female

DRUGS (6)
  1. CYMBALTA [Suspect]
     Indication: PAIN
     Dosage: 60 MG/1 DAY
     Dates: start: 20050901, end: 20051001
  2. NEURONTIN [Concomitant]
  3. ZOCOR [Concomitant]
  4. DYAZIDE [Concomitant]
  5. VONTROL (DIFENIDOLOL HYDROCHLORIDE) [Concomitant]
  6. TOPROL-XL [Concomitant]

REACTIONS (2)
  - HALLUCINATION [None]
  - SOMNOLENCE [None]
